FAERS Safety Report 23762754 (Version 1)
Quarter: 2024Q2

REPORT INFORMATION
  Report Type: Spontaneous
  Country: IL (occurrence: IL)
  Receive Date: 20240419
  Receipt Date: 20240419
  Transmission Date: 20240716
  Serious: Yes (Other)
  Sender: FDA-Public Use
  Company Number: IL-JNJFOC-20231213143

PATIENT
  Age: 78 Month
  Sex: Female
  Weight: 15 kg

DRUGS (1)
  1. DARZALEX [Suspect]
     Active Substance: DARATUMUMAB
     Indication: Autoimmune haemolytic anaemia
     Dosage: ADDITIONAL DOSE EVERY 3 WEEKS FOR 6 MONTHS
     Route: 065
     Dates: end: 202401

REACTIONS (3)
  - Transfusion [Unknown]
  - Drug ineffective for unapproved indication [Unknown]
  - Off label use [Unknown]
